FAERS Safety Report 8103566-3 (Version None)
Quarter: 2012Q1

REPORT INFORMATION
  Report Type: 
  Country: None (occurrence: None)
  Receive Date: 20120201
  Receipt Date: 20120131
  Transmission Date: 20120608
  Serious: Yes (Death, Other)
  Sender: FDA-Public Use
  Company Number: PHFR2012GB000684

PATIENT
  Sex: Male

DRUGS (6)
  1. ASPIRIN [Concomitant]
     Dosage: 75 MG, UNK
     Route: 048
  2. BISOPROLOL [Concomitant]
     Dosage: 5 MG, UNK
  3. BENDROFLUMETHIAZIDE [Concomitant]
     Dosage: 2.5 MG, UNK
  4. SIMVASTATIN [Concomitant]
     Dosage: 40 MG, UNK
  5. CLOZARIL [Suspect]
     Indication: SCHIZOPHRENIA
     Dosage: 500 MG
     Route: 048
     Dates: start: 20050708
  6. METFORMIN HCL [Concomitant]
     Dosage: 2 G, UNK

REACTIONS (3)
  - DIABETES MELLITUS [None]
  - HYPERTENSION [None]
  - CARDIAC DEATH [None]
